FAERS Safety Report 15172587 (Version 1)
Quarter: 2018Q3

REPORT INFORMATION
  Report Type: Spontaneous
  Country: CA (occurrence: CA)
  Receive Date: 20180720
  Receipt Date: 20180720
  Transmission Date: 20181010
  Serious: Yes (Death, Other)
  Sender: FDA-Public Use
  Company Number: CA-TEVA-2018-CA-925813

PATIENT
  Age: 91 Year
  Sex: Female

DRUGS (2)
  1. CAPECITABINE. [Suspect]
     Active Substance: CAPECITABINE
     Route: 065
  2. LETROZOLE. [Suspect]
     Active Substance: LETROZOLE
     Route: 065
     Dates: start: 201611, end: 201702

REACTIONS (3)
  - Drug intolerance [Unknown]
  - Disease progression [Unknown]
  - Death [Fatal]
